FAERS Safety Report 7020573-2 (Version None)
Quarter: 2010Q3

REPORT INFORMATION
  Report Type: 
  Country: None (occurrence: None)
  Receive Date: 20100929
  Receipt Date: 20100924
  Transmission Date: 20110219
  Serious: Yes (Hospitalization)
  Sender: FDA-Public Use
  Company Number: A0790210A

PATIENT
  Age: 60 Year
  Sex: Male
  Weight: 87 kg

DRUGS (9)
  1. AVANDIA [Suspect]
     Dosage: 4MG TWICE PER DAY
     Route: 065
     Dates: start: 20011003, end: 20050130
  2. LANTUS [Concomitant]
  3. QUINAPRIL [Concomitant]
  4. LIPITOR [Concomitant]
  5. TERAZOSIN HCL [Concomitant]
  6. EFFEXOR XR [Concomitant]
  7. GLIPIZIDE [Concomitant]
  8. FINASTERIDE [Concomitant]
  9. ASPIRIN [Concomitant]
     Dosage: 81MG PER DAY

REACTIONS (3)
  - ACUTE CORONARY SYNDROME [None]
  - MYOCARDIAL INFARCTION [None]
  - MYOCARDIAL ISCHAEMIA [None]
